APPROVED DRUG PRODUCT: METHYCLOTHIAZIDE
Active Ingredient: METHYCLOTHIAZIDE
Strength: 2.5MG
Dosage Form/Route: TABLET;ORAL
Application: A087671 | Product #001
Applicant: MYLAN PHARMACEUTICALS INC
Approved: Aug 17, 1982 | RLD: No | RS: No | Type: DISCN